FAERS Safety Report 5005488-3 (Version None)
Quarter: 2006Q2

REPORT INFORMATION
  Report Type: 
  Country: None (occurrence: None)
  Receive Date: 20060518
  Receipt Date: 20051202
  Transmission Date: 20061013
  Serious: Yes (Hospitalization, Other)
  Sender: FDA-Public Use
  Company Number: US-MERCK-0512USA00463

PATIENT
  Age: 48 Year
  Sex: Female
  Weight: 77 kg

DRUGS (1)
  1. VIOXX [Suspect]
     Indication: RHEUMATOID ARTHRITIS
     Route: 048
     Dates: start: 20000101, end: 20030101

REACTIONS (11)
  - ARTHROPATHY [None]
  - CARDIAC MURMUR [None]
  - CEREBROVASCULAR ACCIDENT [None]
  - DYSPNOEA [None]
  - GANGLION [None]
  - HYPERTENSION [None]
  - OBSTRUCTION [None]
  - PRESCRIBED OVERDOSE [None]
  - RENAL DISORDER [None]
  - SPINAL CORD DISORDER [None]
  - VEIN DISORDER [None]
